FAERS Safety Report 5558307-0 (Version None)
Quarter: 2007Q4

REPORT INFORMATION
  Report Type: 
  Country: None (occurrence: None)
  Receive Date: 20071214
  Receipt Date: 20071210
  Transmission Date: 20080405
  Serious: Yes (Hospitalization)
  Sender: FDA-Public Use
  Company Number: US-GILEAD-2007-0014574

PATIENT
  Sex: Male

DRUGS (3)
  1. LETAIRIS [Suspect]
     Indication: PULMONARY HYPERTENSION
     Route: 065
  2. ILOPROST [Concomitant]
     Indication: PULMONARY HYPERTENSION
     Route: 065
  3. SILDENAFIL CITRATE [Concomitant]
     Indication: PULMONARY HYPERTENSION
     Route: 065

REACTIONS (4)
  - FLUID OVERLOAD [None]
  - HYPOTENSION [None]
  - OXYGEN SATURATION DECREASED [None]
  - SYNCOPE [None]
